FAERS Safety Report 14080291 (Version 2)
Quarter: 2017Q4

REPORT INFORMATION
  Report Type: Spontaneous
  Country: EG (occurrence: EG)
  Receive Date: 20171012
  Receipt Date: 20171019
  Transmission Date: 20180321
  Serious: Yes (Other)
  Sender: FDA-Public Use
  Company Number: PHHY2017EG148237

PATIENT
  Age: 5 Year
  Sex: Male
  Weight: 18 kg

DRUGS (3)
  1. ASMAKAST [Suspect]
     Active Substance: MONTELUKAST SODIUM
     Indication: WHEEZING
  2. ASMAKAST [Suspect]
     Active Substance: MONTELUKAST SODIUM
     Indication: COUGH
  3. ASMAKAST [Suspect]
     Active Substance: MONTELUKAST SODIUM
     Indication: ASTHMA
     Dosage: 9 DF, ONCE/SINGLE
     Route: 048
     Dates: start: 20171005

REACTIONS (1)
  - Accidental overdose [Recovered/Resolved]

NARRATIVE: CASE EVENT DATE: 20171005
